FAERS Safety Report 20863555 (Version 3)
Quarter: 2022Q2

REPORT INFORMATION
  Report Type: Report from Study
  Country: CN (occurrence: CN)
  Receive Date: 20220523
  Receipt Date: 20220602
  Transmission Date: 20220720
  Serious: Yes (Life-Threatening)
  Sender: FDA-Public Use
  Company Number: CN-PFIZER INC-202200729249

PATIENT
  Age: 66 Year
  Sex: Female

DRUGS (8)
  1. PALBOCICLIB [Suspect]
     Active Substance: PALBOCICLIB
     Indication: Breast cancer
     Dosage: UNK, DAILY
     Route: 048
  2. AZD-9833 [Suspect]
     Active Substance: AZD-9833
     Indication: Breast cancer
     Dosage: 75 MG, DAILY, TABLET
     Route: 048
     Dates: start: 20220407
  3. PLACEBO [Suspect]
     Active Substance: UNSPECIFIED INGREDIENT
     Indication: Breast cancer
     Dosage: UNK, DAILY, TABLET
     Route: 048
  4. GONADORELIN DIACETATE TETRAHYDRATE [Suspect]
     Active Substance: GONADORELIN DIACETATE TETRAHYDRATE
     Indication: Breast cancer
     Dosage: UNK, LHRH (GONADORELIN DIACETATE TETRAHYDRATE)
  5. OXYCODONE HYDROCHLORIDE [Concomitant]
     Active Substance: OXYCODONE HYDROCHLORIDE
     Indication: Analgesic therapy
     Dosage: 1 DF, 2X/DAY (1 DF Q12H)
     Route: 048
     Dates: start: 20220321, end: 20220328
  6. OXYCODONE HYDROCHLORIDE [Concomitant]
     Active Substance: OXYCODONE HYDROCHLORIDE
     Dosage: 3 DF ONCE
     Route: 048
     Dates: start: 20220408, end: 20220408
  7. MORPHINE HYDROCHLORIDE [Concomitant]
     Active Substance: MORPHINE HYDROCHLORIDE
     Indication: Analgesic therapy
     Dosage: 10 MG ONCE
     Route: 048
     Dates: start: 20220403, end: 20220404
  8. MORPHINE HYDROCHLORIDE [Concomitant]
     Active Substance: MORPHINE HYDROCHLORIDE
     Dosage: 5 MG ONCE
     Route: 048
     Dates: start: 20220407, end: 20220408

REACTIONS (1)
  - Confusional state [Not Recovered/Not Resolved]

NARRATIVE: CASE EVENT DATE: 20220409
